FAERS Safety Report 4876076-4 (Version None)
Quarter: 2006Q1

REPORT INFORMATION
  Report Type: 
  Country: None (occurrence: None)
  Receive Date: 20060106
  Receipt Date: 20060106
  Transmission Date: 20060701
  Serious: Yes (Other)
  Sender: FDA-Public Use
  Company Number: None

PATIENT
  Sex: Male
  Weight: 90.5 kg

DRUGS (4)
  1. TEMOZOLOMIDE 75 MG/ M2 DAILY [Suspect]
     Indication: OLIGODENDROGLIOMA
     Dosage: SEE IMAGE
     Dates: start: 20051122, end: 20051228
  2. RADIATION EXTERNAL BEAN, 3D [Suspect]
     Dosage: SEE IMAGE
  3. DILANTIN [Suspect]
  4. KEPPRA [Suspect]

REACTIONS (5)
  - DECREASED APPETITE [None]
  - DYSGEUSIA [None]
  - LYMPHOPENIA [None]
  - PLATELET COUNT DECREASED [None]
  - TREATMENT NONCOMPLIANCE [None]
